FAERS Safety Report 6244482-1 (Version None)
Quarter: 2009Q2

REPORT INFORMATION
  Report Type: 
  Country: None (occurrence: None)
  Receive Date: 20090625
  Receipt Date: 20090610
  Transmission Date: 20091009
  Serious: Yes (Hospitalization)
  Sender: FDA-Public Use
  Company Number: GR-JNJFOC-20090606981

PATIENT
  Age: 42 Year
  Sex: Female

DRUGS (8)
  1. RISPERIDONE [Suspect]
     Indication: DRUG USE FOR UNKNOWN INDICATION
     Route: 030
  2. HALOPERIDOL [Suspect]
     Route: 065
  3. HALOPERIDOL [Suspect]
     Indication: DRUG USE FOR UNKNOWN INDICATION
     Route: 065
  4. OLANZAPINE [Suspect]
     Indication: DRUG USE FOR UNKNOWN INDICATION
     Route: 065
  5. THYROHORMONE [Concomitant]
     Route: 065
  6. BENZODIAZEPINE DERIVATIVES [Concomitant]
     Route: 065
  7. VALPROATE SODIUM [Concomitant]
     Route: 065
  8. VALPROATE SODIUM [Concomitant]
     Route: 065

REACTIONS (2)
  - NEURITIS CRANIAL [None]
  - SALIVARY HYPERSECRETION [None]
